FAERS Safety Report 7384929-0 (Version None)
Quarter: 2011Q1

REPORT INFORMATION
  Report Type: 
  Country: None (occurrence: None)
  Receive Date: 20110330
  Receipt Date: 20110324
  Transmission Date: 20110831
  Serious: Yes (Other)
  Sender: FDA-Public Use
  Company Number: US-PFIZER INC-2011067165

PATIENT
  Sex: Female

DRUGS (3)
  1. GABAPENTIN [Suspect]
     Indication: STRESS
     Dosage: 1200 MG, 3X/DAY
  2. GABAPENTIN [Suspect]
     Dosage: 1200MG 3X/DAY AND SOMETIMES ADDING 600MG
  3. LYRICA [Suspect]
     Indication: PAIN
     Dosage: UNK

REACTIONS (1)
  - TRIGEMINAL NEURALGIA [None]
